FAERS Safety Report 9132842 (Version 1)
Quarter: 2013Q1

REPORT INFORMATION
  Report Type: Spontaneous
  Country: US (occurrence: US)
  Receive Date: 20130107
  Receipt Date: 20130107
  Transmission Date: 20140127
  Serious: Yes (Death)
  Sender: FDA-Public Use
  Company Number: US-PFIZER INC-2013004274

PATIENT
  Age: 33 Year
  Sex: Male

DRUGS (2)
  1. AMLODIPINE BESILATE [Suspect]
  2. METHADONE [Suspect]

REACTIONS (1)
  - Completed suicide [Fatal]
